FAERS Safety Report 21243888 (Version 2)
Quarter: 2022Q3

REPORT INFORMATION
  Report Type: Spontaneous
  Country: US (occurrence: US)
  Receive Date: 20220823
  Receipt Date: 20220922
  Transmission Date: 20221027
  Serious: Yes (Other)
  Sender: FDA-Public Use
  Company Number: US-PFIZER INC-202200587117

PATIENT
  Age: 77 Year
  Sex: Female

DRUGS (2)
  1. TRAZIMERA [Suspect]
     Active Substance: TRASTUZUMAB-QYYP
     Indication: Breast cancer female
     Dosage: 150 MG
  2. TRAZIMERA [Suspect]
     Active Substance: TRASTUZUMAB-QYYP
     Dosage: TRAZIMERA 150 MG/VIAL, 420 MG/VIAL; FREQUENCY: Q 21 DAYS

REACTIONS (3)
  - Neutropenia [Unknown]
  - Nausea [Unknown]
  - Vomiting [Unknown]
